FAERS Safety Report 15945447 (Version 2)
Quarter: 2019Q1

REPORT INFORMATION
  Report Type: Spontaneous
  Country: US (occurrence: US)
  Receive Date: 20190211
  Receipt Date: 20190219
  Transmission Date: 20190417
  Serious: Yes (Other)
  Sender: FDA-Public Use
  Company Number: US-ASTRAZENECA-2018SF21056

PATIENT
  Age: 41 Year
  Sex: Female

DRUGS (19)
  1. VITAMIN C [Concomitant]
     Active Substance: ASCORBIC ACID
  2. TOPIRAMATE. [Concomitant]
     Active Substance: TOPIRAMATE
  3. NEXIUM [Suspect]
     Active Substance: ESOMEPRAZOLE MAGNESIUM
     Dosage: 40 MG
     Route: 048
     Dates: start: 20130307
  4. METOPROLOL. [Concomitant]
     Active Substance: METOPROLOL
  5. FERROUS SULFATE. [Concomitant]
     Active Substance: FERROUS SULFATE
     Dates: start: 20150909
  6. LEVETIRACETAM. [Concomitant]
     Active Substance: LEVETIRACETAM
     Dates: start: 20171021
  7. FOLIC ACID. [Concomitant]
     Active Substance: FOLIC ACID
     Dates: start: 20171122
  8. TOPIRAMATE. [Concomitant]
     Active Substance: TOPIRAMATE
     Dates: start: 20160810
  9. SODIUM BICARBONATE. [Concomitant]
     Active Substance: SODIUM BICARBONATE
     Dates: start: 20150806
  10. PHENYTOIN. [Concomitant]
     Active Substance: PHENYTOIN
  11. BENZONATATE. [Concomitant]
     Active Substance: BENZONATATE
     Dates: start: 20180404
  12. VITAMIN D3 [Concomitant]
     Active Substance: CHOLECALCIFEROL
  13. LISINOPRIL. [Concomitant]
     Active Substance: LISINOPRIL
  14. KAYEXALATE [Concomitant]
     Active Substance: SODIUM POLYSTYRENE SULFONATE
  15. NORVASC [Concomitant]
     Active Substance: AMLODIPINE BESYLATE
  16. KEPPRA [Concomitant]
     Active Substance: LEVETIRACETAM
  17. NEXIUM [Suspect]
     Active Substance: ESOMEPRAZOLE MAGNESIUM
     Route: 048
  18. HYDROCODONE-ACETAMINOPHEN [Concomitant]
     Active Substance: ACETAMINOPHEN\HYDROCODONE
     Dates: start: 20151008
  19. ASPIRIN. [Concomitant]
     Active Substance: ASPIRIN

REACTIONS (4)
  - Hyperparathyroidism secondary [Unknown]
  - Chronic kidney disease-mineral and bone disorder [Unknown]
  - Nephrogenic anaemia [Unknown]
  - Chronic kidney disease [Unknown]

NARRATIVE: CASE EVENT DATE: 2011
